FAERS Safety Report 17449335 (Version 1)
Quarter: 2020Q1

REPORT INFORMATION
  Report Type: Report from Study
  Country: None (occurrence: US)
  Receive Date: 20200224
  Receipt Date: 20200224
  Transmission Date: 20200409
  Serious: Yes (Hospitalization, Other)
  Sender: FDA-Public Use
  Company Number: US-ABBVIE-19K-163-2878200-00

PATIENT
  Age: 62 Year
  Sex: Female

DRUGS (3)
  1. HUMIRA [Suspect]
     Active Substance: ADALIMUMAB
     Indication: COLITIS ULCERATIVE
     Route: 058
     Dates: start: 20190810, end: 20190914
  2. HUMIRA [Suspect]
     Active Substance: ADALIMUMAB
     Route: 058
     Dates: start: 2019, end: 20191027
  3. HUMIRA [Suspect]
     Active Substance: ADALIMUMAB
     Indication: RHEUMATOID ARTHRITIS
     Route: 058
     Dates: start: 20190418, end: 20190723

REACTIONS (17)
  - Food intolerance [Unknown]
  - Gait disturbance [Not Recovered/Not Resolved]
  - Anaemia [Unknown]
  - Colitis ulcerative [Not Recovered/Not Resolved]
  - Knee arthroplasty [Recovering/Resolving]
  - Loss of personal independence in daily activities [Not Recovered/Not Resolved]
  - Arthropod bite [Unknown]
  - Nausea [Recovering/Resolving]
  - Rheumatoid arthritis [Unknown]
  - Procedural nausea [Unknown]
  - Frequent bowel movements [Recovering/Resolving]
  - Nasopharyngitis [Not Recovered/Not Resolved]
  - Influenza like illness [Not Recovered/Not Resolved]
  - Haemoglobin decreased [Unknown]
  - Rectal haemorrhage [Recovering/Resolving]
  - Vena cava filter insertion [Unknown]
  - Pneumonia [Unknown]

NARRATIVE: CASE EVENT DATE: 2019
